FAERS Safety Report 8834852 (Version 9)
Quarter: 2017Q4

REPORT INFORMATION
  Report Type: Report from Study
  Country: AU (occurrence: AU)
  Receive Date: 20121010
  Receipt Date: 20171215
  Transmission Date: 20180321
  Serious: Yes (Hospitalization, Other)
  Sender: FDA-Public Use
  Company Number: AU-BRISTOL-MYERS SQUIBB COMPANY-16936858

PATIENT
  Age: 63 Year
  Sex: Male

DRUGS (1)
  1. IPILIMUMAB [Suspect]
     Active Substance: IPILIMUMAB
     Indication: METASTATIC MALIGNANT MELANOMA
     Dosage: 1DF:260MG/366MG, 255,850MG  NO OF COURSE:03:19JUL,07AUG,28AUG  INTERRRUPTED ON:28AUG12
     Route: 042
     Dates: start: 20120717, end: 20120828

REACTIONS (3)
  - Nephritis [Recovering/Resolving]
  - Multiple organ dysfunction syndrome [Recovered/Resolved with Sequelae]
  - Autoimmune hepatitis [Recovered/Resolved]

NARRATIVE: CASE EVENT DATE: 20120903
